FAERS Safety Report 21593133 (Version 1)
Quarter: 2022Q4

REPORT INFORMATION
  Report Type: Spontaneous
  Country: US (occurrence: None)
  Receive Date: 20221111
  Receipt Date: 20221111
  Transmission Date: 20230113
  Serious: Yes (Other)
  Sender: FDA-Public Use
  Company Number: None

PATIENT
  Age: 55 Year
  Sex: Female

DRUGS (1)
  1. OPSUMIT [Suspect]
     Active Substance: MACITENTAN
     Indication: Pulmonary arterial hypertension
     Dosage: FREQUENCY : DAILY;?
     Route: 048
     Dates: start: 20151111

REACTIONS (7)
  - Fall [None]
  - Pain in extremity [None]
  - Arthralgia [None]
  - Facial pain [None]
  - Chest pain [None]
  - Contusion [None]
  - Eschar [None]

NARRATIVE: CASE EVENT DATE: 20221022
